FAERS Safety Report 5193481-X (Version None)
Quarter: 2006Q4

REPORT INFORMATION
  Report Type: 
  Country: None (occurrence: None)
  Receive Date: 20061228
  Receipt Date: 20060518
  Transmission Date: 20070319
  Serious: No
  Sender: FDA-Public Use
  Company Number: US-GLAXOSMITHKLINE-A0606975A

PATIENT
  Sex: Male

DRUGS (3)
  1. FLOVENT [Suspect]
  2. ADVAIR DISKUS 100/50 [Suspect]
  3. SEREVENT [Suspect]

REACTIONS (1)
  - MOUTH ULCERATION [None]
